FAERS Safety Report 6542544-2 (Version None)
Quarter: 2010Q1

REPORT INFORMATION
  Report Type: 
  Country: None (occurrence: None)
  Receive Date: 20100119
  Receipt Date: 20100112
  Transmission Date: 20100710
  Serious: Yes (Hospitalization)
  Sender: FDA-Public Use
  Company Number: US-GILEAD-2010-0026441

PATIENT
  Sex: Female

DRUGS (10)
  1. LETAIRIS [Suspect]
     Indication: PULMONARY ARTERIAL HYPERTENSION
     Route: 048
     Dates: start: 20090411
  2. REMODULIN [Concomitant]
  3. ADCIRCA [Concomitant]
  4. COUMADIN [Concomitant]
  5. TORSEMIDE [Concomitant]
  6. ALDACTONE [Concomitant]
  7. PLAQUENIL [Concomitant]
  8. SYNTHROID [Concomitant]
  9. TRAMADOL HCL [Concomitant]
  10. POTASSIUM [Concomitant]

REACTIONS (3)
  - DYSPNOEA [None]
  - INFECTION [None]
  - RIGHT VENTRICULAR FAILURE [None]
